FAERS Safety Report 7602607-7 (Version None)
Quarter: 2011Q3

REPORT INFORMATION
  Report Type: 
  Country: None (occurrence: None)
  Receive Date: 20110712
  Receipt Date: 20110628
  Transmission Date: 20111222
  Serious: Yes (Other)
  Sender: FDA-Public Use
  Company Number: US-RANBAXY-2010US-36169

PATIENT

DRUGS (5)
  1. LIPITOR [Suspect]
     Dosage: UNK
     Route: 065
  2. ZOLOFT [Suspect]
     Dosage: UNK
     Route: 065
  3. CALAN [Suspect]
     Indication: PRODUCT USED FOR UNKNOWN INDICATION
     Dosage: UNK
     Route: 065
  4. CELEBREX [Suspect]
     Dosage: UNK
     Route: 065
  5. CALAN [Suspect]
     Dosage: 240 MG, UNK
     Route: 065

REACTIONS (3)
  - KERATOMILEUSIS [None]
  - STENT PLACEMENT [None]
  - DRUG DOSE OMISSION [None]
